FAERS Safety Report 22054663 (Version 5)
Quarter: 2024Q4

REPORT INFORMATION
  Report Type: Spontaneous
  Country: US (occurrence: US)
  Receive Date: 20230302
  Receipt Date: 20241022
  Transmission Date: 20250114
  Serious: No
  Sender: SANOFI AVENTIS
  Company Number: US-SA-SAC20230302000281

PATIENT
  Sex: Male

DRUGS (1)
  1. DUPIXENT [Suspect]
     Active Substance: DUPILUMAB
     Indication: Asthma
     Dosage: 300 MG, QOW
     Route: 058
     Dates: start: 20221228

REACTIONS (6)
  - Dysphonia [Unknown]
  - Dry throat [Unknown]
  - Aphonia [Recovered/Resolved]
  - Oropharyngeal pain [Unknown]
  - Hypersensitivity [Unknown]
  - Dyspnoea [Unknown]
